FAERS Safety Report 9220831 (Version 1)
Quarter: 2013Q2

REPORT INFORMATION
  Report Type: Spontaneous
  Country: US (occurrence: US)
  Receive Date: 20130409
  Receipt Date: 20130409
  Transmission Date: 20140414
  Serious: No
  Sender: FDA-Public Use
  Company Number: US-BAYER-2013-044191

PATIENT
  Age: 64 Year
  Sex: Female

DRUGS (1)
  1. ALEVE TABLET [Suspect]
     Indication: SCIATICA
     Dosage: UNK UNK, QD
     Route: 048
     Dates: start: 20130321

REACTIONS (1)
  - Drug ineffective [None]
